FAERS Safety Report 25051648 (Version 5)
Quarter: 2025Q3

REPORT INFORMATION
  Report Type: Report from Study
  Country: EU (occurrence: EU)
  Receive Date: 20250307
  Receipt Date: 20250809
  Transmission Date: 20251021
  Serious: Yes (Death, Hospitalization)
  Sender: ALEXION PHARMACEUTICALS
  Company Number: EU-002147023-NVSC2025DE024731

PATIENT
  Sex: Female
  Weight: 86 kg

DRUGS (62)
  1. FULVESTRANT [Suspect]
     Active Substance: FULVESTRANT
     Indication: Hormone receptor positive HER2 negative breast cancer
     Dosage: 250 MG, QD (EVERY 2 WEEKS)
     Dates: start: 20220916, end: 20221025
  2. LETROZOLE [Suspect]
     Active Substance: LETROZOLE
     Indication: Hormone receptor positive HER2 negative breast cancer
     Dosage: 2.5 MG, QD
     Dates: start: 20190821, end: 20220915
  3. KISQALI [Suspect]
     Active Substance: RIBOCICLIB SUCCINATE
     Indication: Hormone receptor positive HER2 negative breast cancer
     Dosage: 600 MG, QD (SCHEMA 21 DAYS INTAKE, 7 DAYS PAUSE)
     Dates: start: 20190823, end: 20191127
  4. KISQALI [Suspect]
     Active Substance: RIBOCICLIB SUCCINATE
     Indication: Hormone receptor positive HER2 negative breast cancer
     Dosage: 400 MG, QD (SCHEMA 21 DAYS INTAKE, 7 DAYS PAUSE)
     Dates: start: 20191206, end: 20221025
  5. KISQALI [Suspect]
     Active Substance: RIBOCICLIB SUCCINATE
     Route: 065
  6. KISQALI [Suspect]
     Active Substance: RIBOCICLIB SUCCINATE
     Route: 065
  7. KISQALI [Suspect]
     Active Substance: RIBOCICLIB SUCCINATE
     Dosage: 400 MG, QD (SCHEMA 21 DAYS INTAKE, 7 DAYS PAUSE)
     Dates: start: 20240821, end: 20250123
  8. XGEVA [Concomitant]
     Active Substance: DENOSUMAB
     Indication: Product used for unknown indication
     Route: 065
  9. XGEVA [Concomitant]
     Active Substance: DENOSUMAB
     Route: 065
  10. XGEVA [Concomitant]
     Active Substance: DENOSUMAB
     Route: 065
  11. XGEVA [Concomitant]
     Active Substance: DENOSUMAB
     Route: 065
  12. XGEVA [Concomitant]
     Active Substance: DENOSUMAB
     Route: 065
  13. XGEVA [Concomitant]
     Active Substance: DENOSUMAB
     Dosage: 120 MG, Q4W
     Dates: start: 20201006, end: 202501
  14. XGEVA [Concomitant]
     Active Substance: DENOSUMAB
     Route: 065
  15. XGEVA [Concomitant]
     Active Substance: DENOSUMAB
     Route: 065
  16. XGEVA [Concomitant]
     Active Substance: DENOSUMAB
     Route: 065
  17. XGEVA [Concomitant]
     Active Substance: DENOSUMAB
     Route: 065
  18. LEVOTHYROXINE [Concomitant]
     Active Substance: LEVOTHYROXINE
     Indication: Product used for unknown indication
     Route: 065
  19. LEVOTHYROXINE [Concomitant]
     Active Substance: LEVOTHYROXINE
     Dosage: 75 UG, QD
     Dates: start: 2000, end: 2005
  20. LEVOTHYROXINE [Concomitant]
     Active Substance: LEVOTHYROXINE
     Route: 065
  21. LEVOTHYROXINE [Concomitant]
     Active Substance: LEVOTHYROXINE
     Route: 065
  22. LEVOTHYROXINE [Concomitant]
     Active Substance: LEVOTHYROXINE
     Route: 065
  23. RAMIPRIL [Concomitant]
     Active Substance: RAMIPRIL
     Indication: Product used for unknown indication
     Route: 065
  24. RAMIPRIL [Concomitant]
     Active Substance: RAMIPRIL
     Route: 065
  25. RAMIPRIL [Concomitant]
     Active Substance: RAMIPRIL
     Route: 065
  26. RAMIPRIL [Concomitant]
     Active Substance: RAMIPRIL
     Route: 065
  27. RAMIPRIL [Concomitant]
     Active Substance: RAMIPRIL
     Route: 065
  28. RAMIPRIL [Concomitant]
     Active Substance: RAMIPRIL
     Route: 065
  29. RAMIPRIL [Concomitant]
     Active Substance: RAMIPRIL
  30. RAMIPRIL [Concomitant]
     Active Substance: RAMIPRIL
     Route: 065
  31. RAMIPRIL [Concomitant]
     Active Substance: RAMIPRIL
     Route: 065
  32. RAMIPRIL [Concomitant]
     Active Substance: RAMIPRIL
     Route: 065
  33. RAMIPRIL [Concomitant]
     Active Substance: RAMIPRIL
     Route: 065
  34. RAMIPRIL [Concomitant]
     Active Substance: RAMIPRIL
     Route: 065
  35. RAMIPRIL [Concomitant]
     Active Substance: RAMIPRIL
     Route: 065
  36. RAMIPRIL [Concomitant]
     Active Substance: RAMIPRIL
     Route: 065
  37. RAMIPRIL [Concomitant]
     Active Substance: RAMIPRIL
     Route: 065
  38. RAMIPRIL [Concomitant]
     Active Substance: RAMIPRIL
     Route: 065
  39. RAMIPRIL [Concomitant]
     Active Substance: RAMIPRIL
     Route: 065
  40. RAMIPRIL [Concomitant]
     Active Substance: RAMIPRIL
     Route: 065
  41. RAMIPRIL [Concomitant]
     Active Substance: RAMIPRIL
     Route: 065
  42. RAMIPRIL [Concomitant]
     Active Substance: RAMIPRIL
     Route: 065
  43. FASLODEX [Concomitant]
     Active Substance: FULVESTRANT
     Indication: Product used for unknown indication
     Route: 065
  44. FASLODEX [Concomitant]
     Active Substance: FULVESTRANT
     Route: 065
  45. FASLODEX [Concomitant]
     Active Substance: FULVESTRANT
     Route: 065
  46. FASLODEX [Concomitant]
     Active Substance: FULVESTRANT
     Route: 065
  47. FASLODEX [Concomitant]
     Active Substance: FULVESTRANT
     Route: 065
  48. FASLODEX [Concomitant]
     Active Substance: FULVESTRANT
     Route: 065
  49. FASLODEX [Concomitant]
     Active Substance: FULVESTRANT
  50. FASLODEX [Concomitant]
     Active Substance: FULVESTRANT
     Dosage: 500 MG Q4W (SUBCUTANEOUS / INTRAMUSCULAR)
     Dates: start: 20221026, end: 20250113
  51. FASLODEX [Concomitant]
     Active Substance: FULVESTRANT
     Route: 065
  52. FASLODEX [Concomitant]
     Active Substance: FULVESTRANT
     Route: 065
  53. FASLODEX [Concomitant]
     Active Substance: FULVESTRANT
     Route: 065
  54. FASLODEX [Concomitant]
     Active Substance: FULVESTRANT
     Route: 065
  55. FASLODEX [Concomitant]
     Active Substance: FULVESTRANT
     Route: 065
  56. FASLODEX [Concomitant]
     Active Substance: FULVESTRANT
     Route: 065
  57. FASLODEX [Concomitant]
     Active Substance: FULVESTRANT
     Route: 065
  58. FASLODEX [Concomitant]
     Active Substance: FULVESTRANT
     Route: 065
  59. FASLODEX [Concomitant]
     Active Substance: FULVESTRANT
     Route: 065
  60. FASLODEX [Concomitant]
     Active Substance: FULVESTRANT
     Route: 065
  61. FASLODEX [Concomitant]
     Active Substance: FULVESTRANT
     Route: 065
  62. FASLODEX [Concomitant]
     Active Substance: FULVESTRANT
     Route: 065

REACTIONS (11)
  - Hepatic failure [Fatal]
  - Tumour invasion [Fatal]
  - Hyperbilirubinaemia [Fatal]
  - Jaundice [Fatal]
  - Chromaturia [Fatal]
  - Faeces discoloured [Fatal]
  - Decreased appetite [Fatal]
  - Nausea [Fatal]
  - Ascites [Fatal]
  - Fatigue [Fatal]
  - Muscle atrophy [Fatal]

NARRATIVE: CASE EVENT DATE: 20250107
